FAERS Safety Report 23267854 (Version 1)
Quarter: 2023Q4

REPORT INFORMATION
  Report Type: Spontaneous
  Country: US (occurrence: None)
  Receive Date: 20231205
  Receipt Date: 20231205
  Transmission Date: 20240110
  Serious: Yes (unspecified)
  Sender: FDA-Public Use
  Company Number: None

PATIENT
  Age: 49 Year
  Sex: Female
  Weight: 67.5 kg

DRUGS (2)
  1. CREST 3D WHITE ADVANCED CHARCOAL [Suspect]
     Active Substance: SODIUM FLUORIDE
     Indication: Dental disorder prophylaxis
     Dosage: OTHER STRENGTH : ADVANCED;?FREQUENCY : 3 TIMES A DAY;?
     Route: 048
     Dates: start: 20231128, end: 20231205
  2. CREST 3D WHITE ADVANCED CHARCOAL [Suspect]
     Active Substance: SODIUM FLUORIDE
     Indication: Dental disorder prophylaxis
     Dosage: OTHER STRENGTH : ADVANCED;?OTHER QUANTITY : 1 1;?FREQUENCY : 3 TIMES A DAY;?
     Route: 048
     Dates: start: 20231128, end: 20231205

REACTIONS (1)
  - Tongue discolouration [None]

NARRATIVE: CASE EVENT DATE: 20231205
